FAERS Safety Report 5606231-7 (Version None)
Quarter: 2008Q1

REPORT INFORMATION
  Report Type: 
  Country: None (occurrence: None)
  Receive Date: 20080129
  Receipt Date: 20070305
  Transmission Date: 20080703
  Serious: No
  Sender: FDA-Public Use
  Company Number: A0641877A

PATIENT
  Sex: Female

DRUGS (8)
  1. BUPROPION HYDROCHLORIDE [Suspect]
     Indication: ANXIETY
     Dosage: 20MG PER DAY
     Route: 048
     Dates: start: 20070101, end: 20070109
  2. PAXIL [Suspect]
     Indication: ANXIETY
     Dosage: 40MG PER DAY
     Route: 048
     Dates: end: 20061201
  3. LEVOTHYROXINE SODIUM [Suspect]
     Indication: THYROID DISORDER
     Dosage: 220MCG PER DAY
     Route: 048
  4. LIPITOR [Suspect]
     Indication: BLOOD CHOLESTEROL INCREASED
     Dosage: 40MG PER DAY
     Route: 048
  5. PREMARIN [Concomitant]
  6. FOSAMAX [Concomitant]
  7. PROTONIX [Concomitant]
  8. BLOOD PRESSURE MEDICATION [Concomitant]

REACTIONS (3)
  - HYPERSENSITIVITY [None]
  - NAUSEA [None]
  - PRURITUS [None]
